FAERS Safety Report 16596259 (Version 1)
Quarter: 2019Q3

REPORT INFORMATION
  Report Type: Spontaneous
  Country: US (occurrence: US)
  Receive Date: 20190718
  Receipt Date: 20190718
  Transmission Date: 20191004
  Serious: Yes (Disabling)
  Sender: FDA-Public Use
  Company Number: None

PATIENT
  Age: 27 Year
  Sex: Male
  Weight: 72 kg

DRUGS (1)
  1. MOXIFLOXACIN. [Suspect]
     Active Substance: MOXIFLOXACIN
     Indication: MYCOPLASMA INFECTION
     Dosage: ?          QUANTITY:14 TABLET(S);?
     Route: 048

REACTIONS (4)
  - Depersonalisation/derealisation disorder [None]
  - Affect lability [None]
  - Muscular weakness [None]
  - Tendon disorder [None]

NARRATIVE: CASE EVENT DATE: 20181019
